FAERS Safety Report 9886469 (Version 3)
Quarter: 2014Q1

REPORT INFORMATION
  Report Type: Spontaneous
  Country: US (occurrence: US)
  Receive Date: 20140210
  Receipt Date: 20140311
  Transmission Date: 20141002
  Serious: No
  Sender: FDA-Public Use
  Company Number: US-GILEAD-2014-0094071

PATIENT
  Sex: Female

DRUGS (3)
  1. LETAIRIS [Suspect]
     Indication: PULMONARY HYPERTENSION
     Dosage: 10 MG, QD
     Route: 048
     Dates: start: 20090325
  2. REMODULIN [Concomitant]
  3. RIOCIGUAT [Concomitant]

REACTIONS (3)
  - Diarrhoea [Unknown]
  - Headache [Unknown]
  - Sinus congestion [Unknown]
